FAERS Safety Report 10936542 (Version 1)
Quarter: 2015Q1

REPORT INFORMATION
  Report Type: Spontaneous
  Country: US (occurrence: None)
  Receive Date: 20150212
  Receipt Date: 20150212
  Transmission Date: 20150721
  Serious: No
  Sender: FDA-Public Use
  Company Number: TPA2011A06071

PATIENT
  Age: 28 Year
  Sex: Male

DRUGS (3)
  1. INDOCIN (INDOMETACN) [Concomitant]
  2. LISINOPRIL (LISINOPRIL) [Concomitant]
     Active Substance: LISINOPRIL
  3. ULORIC [Suspect]
     Active Substance: FEBUXOSTAT
     Indication: GOUT
     Route: 048
     Dates: start: 20110322

REACTIONS (2)
  - Accidental overdose [None]
  - Gout [None]

NARRATIVE: CASE EVENT DATE: 2011
